FAERS Safety Report 23648058 (Version 2)
Quarter: 2024Q3

REPORT INFORMATION
  Report Type: Report from Study
  Country: US (occurrence: US)
  Receive Date: 20240319
  Receipt Date: 20240729
  Transmission Date: 20241017
  Serious: Yes (Hospitalization)
  Sender: MYLAN
  Company Number: US-MYLANLABS-2024M1025114

PATIENT
  Sex: Female

DRUGS (1)
  1. CLOZAPINE [Suspect]
     Active Substance: CLOZAPINE
     Indication: Product used for unknown indication
     Dosage: 175 MILLIGRAM, TOTAL TWICE DAILY BID (100MG AND 25MG X 3=75MG) AND
     Route: 048

REACTIONS (1)
  - Chronic obstructive pulmonary disease [Unknown]
